FAERS Safety Report 23327302 (Version 1)
Quarter: 2023Q4

REPORT INFORMATION
  Report Type: Spontaneous
  Country: LT (occurrence: LT)
  Receive Date: 20231221
  Receipt Date: 20231221
  Transmission Date: 20240110
  Serious: Yes (Life-Threatening, Hospitalization, Other)
  Sender: FDA-Public Use
  Company Number: LT-NOVPHSZ-PHHY2017LT189920

PATIENT
  Age: 53 Year
  Sex: Female

DRUGS (25)
  1. DEXAMETHASONE [Suspect]
     Active Substance: DEXAMETHASONE
     Indication: Premedication
     Dosage: 4 MG, QD (8 TABLETS)
     Route: 048
     Dates: start: 2016
  2. DEXAMETHASONE [Suspect]
     Active Substance: DEXAMETHASONE
     Dosage: 4 MG
     Route: 048
     Dates: start: 20161120, end: 20161121
  3. DEXAMETHASONE [Suspect]
     Active Substance: DEXAMETHASONE
     Dosage: 8 DF
     Route: 048
  4. APREPITANT [Interacting]
     Active Substance: APREPITANT
     Indication: Prophylaxis of nausea and vomiting
     Dosage: 125 MG, QD
     Route: 048
     Dates: start: 2016
  5. APREPITANT [Interacting]
     Active Substance: APREPITANT
     Indication: Prophylaxis
  6. ALPRAZOLAM [Interacting]
     Active Substance: ALPRAZOLAM
     Indication: Anxiety disorder
     Dosage: 0.5 MG, QD (LONG TERM USE)
     Route: 048
     Dates: start: 2016
  7. SHARK CARTILAGE\SHARK, UNSPECIFIED [Interacting]
     Active Substance: SHARK CARTILAGE\SHARK, UNSPECIFIED
     Indication: Product used for unknown indication
     Dosage: 7.5 ML, QD
     Route: 048
     Dates: start: 2016
  8. SHARK CARTILAGE\SHARK, UNSPECIFIED [Interacting]
     Active Substance: SHARK CARTILAGE\SHARK, UNSPECIFIED
     Dosage: 8 ML, UNK
     Route: 048
     Dates: start: 2016
  9. METOPROLOL SUCCINATE [Interacting]
     Active Substance: METOPROLOL SUCCINATE
     Indication: Hypertension
     Dosage: 47.5 MG, QD
     Route: 048
     Dates: start: 2016
  10. CISPLATIN [Interacting]
     Active Substance: CISPLATIN
     Dosage: 150 MG, QD (2 CYCLES AFTER 6 PREVIOUS CYCLES OF CISPLATIN AND PEMETREXED)
     Route: 042
     Dates: start: 2016, end: 2016
  11. CISPLATIN [Interacting]
     Active Substance: CISPLATIN
     Indication: Pleural mesothelioma
     Dosage: 150 MG, QD (2 CYCLES AFTER 6 PREVIOUS CYCLES OF CISPLATIN AND PEMETREXED))
     Route: 042
     Dates: start: 2015
  12. CISPLATIN [Interacting]
     Active Substance: CISPLATIN
     Dosage: 0.5MG/ML 100ML - II CYCLE
     Route: 042
     Dates: start: 201611
  13. CYANOCOBALAMIN [Interacting]
     Active Substance: CYANOCOBALAMIN
     Indication: Premedication
     Dosage: 1000 MG, UNK
     Route: 042
     Dates: start: 2016
  14. EPINEPHRINE HYDROCHLORIDE [Interacting]
     Active Substance: EPINEPHRINE HYDROCHLORIDE
     Indication: Cardio-respiratory arrest
     Route: 065
  15. FENTANYL [Interacting]
     Active Substance: FENTANYL\FENTANYL CITRATE
     Indication: Pain
     Dosage: 1800 UG, QD
     Route: 065
  16. FENTANYL [Interacting]
     Active Substance: FENTANYL\FENTANYL CITRATE
     Indication: Pain management
     Dosage: 75 MG, QH
     Route: 062
     Dates: start: 2016
  17. FOLIC ACID [Interacting]
     Active Substance: FOLIC ACID
     Indication: Premedication
     Dosage: 1000 MG, QD
     Route: 042
     Dates: start: 2016
  18. MANNITOL [Interacting]
     Active Substance: MANNITOL
     Indication: Drug toxicity prophylaxis
     Dosage: 1000 ML, DAILY (10 PROC.)
     Route: 042
     Dates: start: 2016
  19. ONDANSETRON [Interacting]
     Active Substance: ONDANSETRON
     Indication: Prophylaxis of nausea and vomiting
     Dosage: 8 MG, DAILY
     Route: 048
     Dates: start: 2016
  20. PEMETREXED DISODIUM [Interacting]
     Active Substance: PEMETREXED DISODIUM
     Indication: Pleural mesothelioma
     Dosage: UNK (SECOND CYCLE SECOND)
     Route: 065
     Dates: start: 201611
  21. TIANEPTINE [Interacting]
     Active Substance: TIANEPTINE
     Indication: Pain management
     Route: 048
     Dates: start: 2016
  22. TIANEPTINE [Interacting]
     Active Substance: TIANEPTINE
     Indication: Depression
  23. TIANEPTINE [Interacting]
     Active Substance: TIANEPTINE
     Indication: Pain
  24. TRAMADOL HYDROCHLORIDE [Interacting]
     Active Substance: TRAMADOL HYDROCHLORIDE
     Indication: Pain management
     Dosage: 100 MG, QD (LONG-TERM USE)
     Route: 048
     Dates: start: 2016
  25. TRAMADOL HYDROCHLORIDE [Interacting]
     Active Substance: TRAMADOL HYDROCHLORIDE
     Indication: Pain

REACTIONS (12)
  - Hypomagnesaemia [Unknown]
  - Circulatory collapse [Recovered/Resolved]
  - Drug interaction [Unknown]
  - Cardiotoxicity [Recovered/Resolved]
  - Anaphylactic reaction [Recovered/Resolved]
  - Toxicity to various agents [Unknown]
  - Loss of consciousness [Recovered/Resolved]
  - Cardiac arrest [Recovered/Resolved]
  - Hypersensitivity [Recovered/Resolved]
  - Haemodynamic instability [Recovered/Resolved]
  - Cardio-respiratory arrest [Recovering/Resolving]
  - Overdose [Recovered/Resolved]

NARRATIVE: CASE EVENT DATE: 20160101
